FAERS Safety Report 6730004-5 (Version None)
Quarter: 2010Q2

REPORT INFORMATION
  Report Type: 
  Country: None (occurrence: None)
  Receive Date: 20100518
  Receipt Date: 20100507
  Transmission Date: 20101027
  Serious: Yes (Other)
  Sender: FDA-Public Use
  Company Number: US-BAXTER-2010BH012523

PATIENT
  Age: 14 Year
  Sex: Female
  Weight: 54 kg

DRUGS (2)
  1. BEBULIN [Suspect]
     Indication: FACTOR X DEFICIENCY
     Route: 042
  2. DEPO-PROVERA [Concomitant]
     Indication: CONTRACEPTION
     Route: 030
     Dates: start: 20090301

REACTIONS (4)
  - CHEST PAIN [None]
  - FIBRIN D DIMER INCREASED [None]
  - INFUSION SITE PAIN [None]
  - THROMBOSIS [None]
